FAERS Safety Report 8144177-3 (Version None)
Quarter: 2012Q1

REPORT INFORMATION
  Report Type: 
  Country: None (occurrence: None)
  Receive Date: 20120217
  Receipt Date: 20120210
  Transmission Date: 20120608
  Serious: Yes (Hospitalization)
  Sender: FDA-Public Use
  Company Number: US-BAYER-2011-058304

PATIENT
  Age: 25 Year
  Sex: Female
  Weight: 86.168 kg

DRUGS (5)
  1. CAFFEINE PILLS CONTAINING STIMULANTS [Concomitant]
  2. HYDROCORTISONE [Concomitant]
     Indication: RASH
     Dosage: 10 %, QID
     Route: 061
     Dates: start: 20090209
  3. YAZ [Suspect]
     Indication: PREMENSTRUAL SYNDROME
     Dosage: UNK
     Dates: start: 20070401, end: 20090501
  4. CEPHALEXIN [Concomitant]
     Indication: EAR PAIN
     Dosage: 500 MG, TID
     Dates: start: 20090209
  5. WELLBUTRIN XL [Concomitant]
     Dosage: UNK
     Dates: start: 20090101, end: 20110101

REACTIONS (8)
  - COLITIS [None]
  - INJURY [None]
  - CHOLECYSTITIS CHRONIC [None]
  - PAIN [None]
  - GALLBLADDER DISORDER [None]
  - ANHEDONIA [None]
  - ABDOMINAL PAIN [None]
  - ANXIETY [None]
